FAERS Safety Report 23444287 (Version 3)
Quarter: 2024Q1

REPORT INFORMATION
  Report Type: Report from Study
  Country: US (occurrence: US)
  Receive Date: 20240125
  Receipt Date: 20240328
  Transmission Date: 20240410
  Serious: Yes (Other)
  Sender: FDA-Public Use
  Company Number: US-JAZZ PHARMACEUTICALS-2021-US-010392

PATIENT
  Age: 30 Year
  Sex: Female

DRUGS (14)
  1. XYWAV [Suspect]
     Active Substance: CALCIUM OXYBATE\MAGNESIUM OXYBATE\POTASSIUM OXYBATE\SODIUM OXYBATE
     Indication: Narcolepsy
     Dosage: 3.5 GRAM, FIRST DOSE
     Route: 048
     Dates: start: 202011, end: 202105
  2. XYWAV [Suspect]
     Active Substance: CALCIUM OXYBATE\MAGNESIUM OXYBATE\POTASSIUM OXYBATE\SODIUM OXYBATE
     Indication: Cataplexy
     Dosage: 3 GRAM, SECOND DOSE
     Route: 048
     Dates: start: 202011, end: 202105
  3. XYWAV [Suspect]
     Active Substance: CALCIUM OXYBATE\MAGNESIUM OXYBATE\POTASSIUM OXYBATE\SODIUM OXYBATE
     Indication: Somnolence
     Dosage: 4.5 GRAM FIRST DOSE
     Route: 048
  4. XYWAV [Suspect]
     Active Substance: CALCIUM OXYBATE\MAGNESIUM OXYBATE\POTASSIUM OXYBATE\SODIUM OXYBATE
     Dosage: 3.5 GRAM SECOND DOSE
     Route: 048
  5. XYWAV [Suspect]
     Active Substance: CALCIUM OXYBATE\MAGNESIUM OXYBATE\POTASSIUM OXYBATE\SODIUM OXYBATE
     Dosage: TAKE 4.5G AT BEDTIME AND 3.5G 2+1/2-4 HOURS LATER
     Route: 048
  6. XYWAV [Suspect]
     Active Substance: CALCIUM OXYBATE\MAGNESIUM OXYBATE\POTASSIUM OXYBATE\SODIUM OXYBATE
     Dosage: 4.5 GRAM, QD
  7. LORATADINE [Suspect]
     Active Substance: LORATADINE
     Indication: Rhinorrhoea
  8. LORATADINE [Suspect]
     Active Substance: LORATADINE
     Dosage: 4.5 GRAM, QD
  9. MODAFINIL [Concomitant]
     Active Substance: MODAFINIL
     Dosage: UNK
     Dates: start: 20171201
  10. MIRENA [Concomitant]
     Active Substance: LEVONORGESTREL
     Dosage: UNK
     Route: 048
     Dates: start: 20170101
  11. GLYCOPYRROLATE [Concomitant]
     Active Substance: GLYCOPYRROLATE
     Dosage: UNK
     Dates: start: 20220101
  12. SERTRALINE HYDROCHLORIDE [Concomitant]
     Active Substance: SERTRALINE HYDROCHLORIDE
     Dosage: UNK
     Dates: start: 20230601
  13. NAPROXEN [Concomitant]
     Active Substance: NAPROXEN
  14. HAPPY GUMMIES BLACK ELDERBERRY [Concomitant]
     Indication: Product used for unknown indication
     Dosage: UNK
     Dates: start: 20230101

REACTIONS (14)
  - Loss of consciousness [Recovered/Resolved]
  - Haematemesis [Unknown]
  - Road traffic accident [Unknown]
  - Injury [Unknown]
  - Concussion [Not Recovered/Not Resolved]
  - Mania [Not Recovered/Not Resolved]
  - Vomiting [Recovered/Resolved]
  - Post concussion syndrome [Unknown]
  - Muscle spasms [Unknown]
  - Rhinorrhoea [Unknown]
  - Drug interaction [Unknown]
  - Product administration interrupted [Unknown]
  - Product dose omission issue [Unknown]
  - Off label use [Unknown]

NARRATIVE: CASE EVENT DATE: 20210603
